FAERS Safety Report 24669296 (Version 1)
Quarter: 2024Q4

REPORT INFORMATION
  Report Type: Spontaneous
  Country: SG (occurrence: SG)
  Receive Date: 20241127
  Receipt Date: 20241127
  Transmission Date: 20250115
  Serious: Yes (Other)
  Sender: REGENERON
  Company Number: SG-BAYER-2024A164672

PATIENT

DRUGS (1)
  1. EYLEA [Suspect]
     Active Substance: AFLIBERCEPT
     Indication: Neovascular age-related macular degeneration
     Dosage: 2 MG (STRENGTH: 40MG/ML)

REACTIONS (1)
  - Inappropriate schedule of product administration [Recovering/Resolving]
